FAERS Safety Report 6054232-X (Version None)
Quarter: 2009Q1

REPORT INFORMATION
  Report Type: 
  Country: None (occurrence: None)
  Receive Date: 20090127
  Receipt Date: 20090116
  Transmission Date: 20090719
  Serious: Yes (Hospitalization)
  Sender: FDA-Public Use
  Company Number: JP-JNJFOC-20090102220

PATIENT
  Sex: Male

DRUGS (17)
  1. CRAVIT [Suspect]
     Indication: PHARYNGITIS
     Route: 048
  2. CRAVIT [Suspect]
     Indication: NASOPHARYNGITIS
     Route: 048
  3. CRAVIT [Suspect]
     Indication: BRONCHITIS
     Route: 048
  4. LOXONIN [Interacting]
     Indication: PHARYNGITIS
     Route: 048
  5. LOXONIN [Interacting]
     Indication: NASOPHARYNGITIS
     Route: 048
  6. LOXONIN [Interacting]
     Indication: PYREXIA
     Route: 048
  7. TRANSAMIN [Suspect]
     Indication: PHARYNGITIS
     Route: 048
  8. PL GRAN [Suspect]
     Indication: PHARYNGITIS
     Route: 048
  9. DASEN [Suspect]
     Indication: PHARYNGITIS
     Route: 048
  10. DASEN [Suspect]
     Indication: NASOPHARYNGITIS
     Route: 048
  11. URSO 250 [Concomitant]
     Route: 048
  12. URSO 250 [Concomitant]
     Indication: HEPATITIS C
     Route: 048
  13. GLYCYRON [Concomitant]
     Indication: HEPATITIS C
     Route: 048
  14. UNKNOWN MEDICATION [Concomitant]
     Route: 065
  15. ISODINE GARGLE [Concomitant]
     Indication: PHARYNGITIS
     Route: 049
  16. STRONG NEO-MINOPHAGEN C [Concomitant]
     Route: 042
  17. STRONG NEO-MINOPHAGEN C [Concomitant]
     Indication: HEPATITIS C
     Route: 042

REACTIONS (2)
  - DRUG INTERACTION [None]
  - MYOCLONUS [None]
